FAERS Safety Report 19483786 (Version 1)
Quarter: 2021Q3

REPORT INFORMATION
  Report Type: Spontaneous
  Country: AT (occurrence: AT)
  Receive Date: 20210701
  Receipt Date: 20210701
  Transmission Date: 20211014
  Serious: Yes (Other)
  Sender: FDA-Public Use
  Company Number: AT-ALLERGAN-2124305US

PATIENT
  Sex: Male
  Weight: 90 kg

DRUGS (11)
  1. RIVOTRIL [Concomitant]
     Active Substance: CLONAZEPAM
     Dosage: 0.5 MG
     Route: 065
     Dates: start: 20201107, end: 20201113
  2. CITALOPRAM HYDROBROMIDE ? BP [Suspect]
     Active Substance: CITALOPRAM HYDROBROMIDE
     Dosage: OVERDOSE: 60MILLIGRAM OF SEROPRAM
     Route: 065
     Dates: start: 20201218, end: 20201218
  3. CITALOPRAM HYDROBROMIDE ? BP [Suspect]
     Active Substance: CITALOPRAM HYDROBROMIDE
     Dosage: OVERDOSE: 80 MILLIGRAM OF SEROPRAM
     Route: 065
     Dates: start: 20201219, end: 20201228
  4. RIVOTRIL [Concomitant]
     Active Substance: CLONAZEPAM
     Dosage: 1.5 MG
     Route: 065
     Dates: start: 20210104, end: 20210317
  5. CITALOPRAM HYDROBROMIDE ? BP [Suspect]
     Active Substance: CITALOPRAM HYDROBROMIDE
     Indication: PRODUCT USED FOR UNKNOWN INDICATION
     Dosage: 20 MG
     Route: 065
     Dates: start: 20201214, end: 20201216
  6. TRITTICO [Concomitant]
     Active Substance: TRAZODONE HYDROCHLORIDE
     Indication: PRODUCT USED FOR UNKNOWN INDICATION
     Dosage: 100 MG
     Route: 065
     Dates: start: 20210120, end: 20210225
  7. RIVOTRIL [Concomitant]
     Active Substance: CLONAZEPAM
     Dosage: 1.5 MG
     Route: 065
     Dates: start: 20210318, end: 20210325
  8. TRITTICO [Concomitant]
     Active Substance: TRAZODONE HYDROCHLORIDE
     Dosage: 50 MG
     Route: 065
     Dates: start: 20201202, end: 20201207
  9. CITALOPRAM HYDROBROMIDE ? BP [Suspect]
     Active Substance: CITALOPRAM HYDROBROMIDE
     Dosage: 40 MG
     Route: 065
     Dates: start: 20201217, end: 20201217
  10. TRITTICO [Concomitant]
     Active Substance: TRAZODONE HYDROCHLORIDE
     Dosage: 100 MG
     Route: 065
     Dates: start: 20201208, end: 20210119
  11. RIVOTRIL [Concomitant]
     Active Substance: CLONAZEPAM
     Indication: PRODUCT USED FOR UNKNOWN INDICATION
     Dosage: 1 MG
     Route: 065
     Dates: start: 20201114, end: 20210103

REACTIONS (2)
  - Overdose [Unknown]
  - Suicidal ideation [Recovered/Resolved]

NARRATIVE: CASE EVENT DATE: 20201225
